FAERS Safety Report 4726546-4 (Version None)
Quarter: 2005Q3

REPORT INFORMATION
  Report Type: 
  Country: None (occurrence: None)
  Receive Date: 20050727
  Receipt Date: 20050606
  Transmission Date: 20060218
  Serious: Yes (Hospitalization, Disabling)
  Sender: FDA-Public Use
  Company Number: US-MERCK-0506USA01004

PATIENT
  Age: 62 Year
  Sex: Male

DRUGS (4)
  1. ZOCOR [Suspect]
     Indication: HYPERCHOLESTEROLAEMIA
     Route: 048
  2. ZOCOR [Suspect]
     Indication: HYPERTENSION
     Route: 048
  3. ACIPHEX [Concomitant]
     Route: 065
  4. PLAVIX [Suspect]
     Route: 065

REACTIONS (4)
  - CHOLECYSTITIS ACUTE [None]
  - GASTROINTESTINAL HAEMORRHAGE [None]
  - HELICOBACTER INFECTION [None]
  - RHABDOMYOLYSIS [None]
